FAERS Safety Report 9754360 (Version 1)
Quarter: 2013Q4

REPORT INFORMATION
  Report Type: Spontaneous
  Country: IT (occurrence: IT)
  Receive Date: 20131213
  Receipt Date: 20131213
  Transmission Date: 20140711
  Serious: Yes (Hospitalization)
  Sender: FDA-Public Use
  Company Number: ALCN2013IT006178

PATIENT
  Age: 3 Year
  Sex: Female

DRUGS (2)
  1. TOBRADEX [Suspect]
     Indication: CONJUNCTIVITIS
     Dosage: 1 GTT, UNK
     Route: 047
     Dates: start: 20131202
  2. NUROFEN [Concomitant]
     Dosage: UNK
     Route: 065

REACTIONS (1)
  - Asthma [Unknown]
